FAERS Safety Report 25398639 (Version 1)
Quarter: 2025Q2

REPORT INFORMATION
  Report Type: Report from Study
  Country: US (occurrence: US)
  Receive Date: 20250604
  Receipt Date: 20250604
  Transmission Date: 20250716
  Serious: No
  Sender: MALLINCKRODT
  Company Number: US-MALLINCKRODT-MNK202502861

PATIENT
  Sex: Female

DRUGS (3)
  1. CORTICOTROPIN [Suspect]
     Active Substance: CORTICOTROPIN
     Indication: Product used for unknown indication
  2. PEPTO-BISMOL [Concomitant]
     Active Substance: BISMUTH SUBSALICYLATE
  3. ALKA-SELTZER [Concomitant]
     Active Substance: ANHYDROUS CITRIC ACID\ASPIRIN\SODIUM BICARBONATE

REACTIONS (6)
  - Impaired gastric emptying [Unknown]
  - Abnormal loss of weight [Unknown]
  - Injection site bruising [Recovered/Resolved]
  - Nausea [Not Recovered/Not Resolved]
  - Vomiting [Unknown]
  - Constipation [Unknown]
